FAERS Safety Report 7795730-8 (Version None)
Quarter: 2011Q4

REPORT INFORMATION
  Report Type: 
  Country: None (occurrence: None)
  Receive Date: 20111004
  Receipt Date: 20110930
  Transmission Date: 20120403
  Serious: Yes (Hospitalization)
  Sender: FDA-Public Use
  Company Number: DE-ABBOTT-11P-062-0837686-00

PATIENT
  Age: 28 Year
  Sex: Female

DRUGS (4)
  1. MYDOCALM [Concomitant]
     Indication: PRODUCT USED FOR UNKNOWN INDICATION
  2. AMITRYPTILIN [Concomitant]
     Indication: PRODUCT USED FOR UNKNOWN INDICATION
  3. HUMIRA [Suspect]
     Indication: PSORIASIS
     Route: 058
     Dates: start: 20081202
  4. DAIVOBET [Concomitant]
     Indication: PRODUCT USED FOR UNKNOWN INDICATION
     Dates: end: 20110708

REACTIONS (1)
  - DEPRESSION [None]
